FAERS Safety Report 21874512 (Version 2)
Quarter: 2023Q1

REPORT INFORMATION
  Report Type: Spontaneous
  Country: US (occurrence: None)
  Receive Date: 20230117
  Receipt Date: 20230310
  Transmission Date: 20230418
  Serious: Yes (Hospitalization, Other)
  Sender: FDA-Public Use
  Company Number: 2023A003595

PATIENT
  Sex: Female

DRUGS (2)
  1. SYMBICORT [Suspect]
     Active Substance: BUDESONIDE\FORMOTEROL FUMARATE DIHYDRATE
     Indication: Chronic obstructive pulmonary disease
     Dosage: 160 MCG, 2 PUFFS , TWO TIMES A DAY
     Route: 055
  2. SPIRIVA [Concomitant]
     Active Substance: TIOTROPIUM BROMIDE MONOHYDRATE
     Route: 065

REACTIONS (26)
  - Ovarian cancer recurrent [Unknown]
  - Compression fracture [Unknown]
  - Bladder cancer [Unknown]
  - Lymphoma [Unknown]
  - Pleurisy [Unknown]
  - Spinal fracture [Unknown]
  - Pneumonia [Unknown]
  - Bronchitis chronic [Unknown]
  - Sepsis [Unknown]
  - Memory impairment [Unknown]
  - Chronic obstructive pulmonary disease [Unknown]
  - Glaucoma [Unknown]
  - Cataract [Unknown]
  - Bone disorder [Unknown]
  - Wheezing [Unknown]
  - Heart rate increased [Unknown]
  - Nasal congestion [Unknown]
  - Osteoporosis [Unknown]
  - Pain [Unknown]
  - Nervous system disorder [Unknown]
  - Therapeutic product effect delayed [Unknown]
  - Device use issue [Unknown]
  - Incorrect dose administered by device [Unknown]
  - Drug ineffective [Unknown]
  - Device malfunction [Unknown]
  - Product dose omission in error [Unknown]
